FAERS Safety Report 9988982 (Version 1)
Quarter: 2014Q1

REPORT INFORMATION
  Report Type: Spontaneous
  Country: US (occurrence: US)
  Receive Date: 20140310
  Receipt Date: 20140310
  Transmission Date: 20141002
  Serious: No
  Sender: FDA-Public Use
  Company Number: US-ABBVIE-13P-163-1128903-00

PATIENT
  Sex: Female

DRUGS (1)
  1. HUMIRA [Suspect]
     Indication: PSORIASIS
     Dates: start: 201205, end: 201301

REACTIONS (3)
  - Blister [Recovered/Resolved]
  - Psoriasis [Not Recovered/Not Resolved]
  - Rash generalised [Recovered/Resolved]
